FAERS Safety Report 8962592 (Version 3)
Quarter: 2013Q1

REPORT INFORMATION
  Report Type: Report from Study
  Country: AR (occurrence: AR)
  Receive Date: 20121213
  Receipt Date: 20130328
  Transmission Date: 20140127
  Serious: Yes (Other)
  Sender: FDA-Public Use
  Company Number: AR-ABBOTT-12P-007-1017901-00

PATIENT
  Sex: Female

DRUGS (2)
  1. HUMIRA [Suspect]
     Indication: RHEUMATOID ARTHRITIS
     Route: 058
     Dates: start: 20120301
  2. UNKNOWN MEDICATION [Suspect]

REACTIONS (9)
  - Mental disorder [Unknown]
  - Nervous system disorder [Unknown]
  - Aphasia [Unknown]
  - Spinal deformity [Recovering/Resolving]
  - Myasthenia gravis [Unknown]
  - Muscle contracture [Unknown]
  - Asthenia [Unknown]
  - Abdominal discomfort [Recovering/Resolving]
  - Weight decreased [Recovered/Resolved]
